FAERS Safety Report 17369696 (Version 1)
Quarter: 2020Q1

REPORT INFORMATION
  Report Type: Report from Study
  Country: ZA (occurrence: ZA)
  Receive Date: 20200205
  Receipt Date: 20200205
  Transmission Date: 20200409
  Serious: Yes (Other)
  Sender: FDA-Public Use
  Company Number: ZA-EMD SERONO-9143480

PATIENT
  Age: 27 Year
  Sex: Male

DRUGS (1)
  1. REBIF [Suspect]
     Active Substance: INTERFERON BETA-1A
     Indication: MULTIPLE SCLEROSIS
     Dates: start: 20190311

REACTIONS (5)
  - Asthenia [Unknown]
  - Haematochezia [Recovered/Resolved]
  - Apathy [Unknown]
  - Anxiety [Unknown]
  - Stress [Unknown]

NARRATIVE: CASE EVENT DATE: 20200126
